FAERS Safety Report 5171640-X (Version None)
Quarter: 2006Q4

REPORT INFORMATION
  Report Type: 
  Country: None (occurrence: None)
  Receive Date: 20061213
  Receipt Date: 20060911
  Transmission Date: 20070319
  Serious: Yes (Hospitalization, Other)
  Sender: FDA-Public Use
  Company Number: DK-BRISTOL-MYERS SQUIBB COMPANY-13504493

PATIENT
  Age: 61 Year
  Sex: Female

DRUGS (6)
  1. DASATINIB [Suspect]
     Indication: CHRONIC MYELOID LEUKAEMIA
     Route: 048
     Dates: start: 20051213
  2. CORODIL [Concomitant]
  3. ARTHROTEC [Concomitant]
  4. ALLOPURINOL [Concomitant]
     Dates: start: 20051031
  5. FUROSEMIDE [Concomitant]
  6. ACETAMINOPHEN [Concomitant]

REACTIONS (2)
  - ERYTHEMA NODOSUM [None]
  - PYREXIA [None]
